FAERS Safety Report 13090475 (Version 1)
Quarter: 2017Q1

REPORT INFORMATION
  Report Type: Report from Study
  Country: CO (occurrence: CO)
  Receive Date: 20170105
  Receipt Date: 20170105
  Transmission Date: 20170428
  Serious: Yes (Death, Hospitalization, Other)
  Sender: FDA-Public Use
  Company Number: CO-ACTELION-A-US2017-147810

PATIENT
  Age: 56 Year
  Sex: Female

DRUGS (1)
  1. VENTAVIS [Suspect]
     Active Substance: ILOPROST
     Indication: PULMONARY ARTERIAL HYPERTENSION
     Dosage: 1 DF, 6/D
     Route: 055
     Dates: start: 20100929, end: 20161223

REACTIONS (5)
  - Product use issue [Recovered/Resolved]
  - Respiratory failure [Unknown]
  - Cardiac arrest [Fatal]
  - Asphyxia [Recovering/Resolving]
  - Influenza [Recovering/Resolving]

NARRATIVE: CASE EVENT DATE: 20161205
